FAERS Safety Report 11892343 (Version 3)
Quarter: 2016Q1

REPORT INFORMATION
  Report Type: Report from Study
  Country: BR (occurrence: BR)
  Receive Date: 20160106
  Receipt Date: 20160120
  Transmission Date: 20160526
  Serious: Yes (Death, Other)
  Sender: FDA-Public Use
  Company Number: BR-GILEAD-2016-0191346

PATIENT
  Age: 50 Year
  Sex: Female

DRUGS (2)
  1. BOSENTAN [Concomitant]
     Active Substance: BOSENTAN
     Dosage: UNK
     Dates: start: 20150822
  2. AMBRISENTAN [Suspect]
     Active Substance: AMBRISENTAN
     Indication: PRODUCT USED FOR UNKNOWN INDICATION
     Dosage: 10 MG, QD
     Route: 048
     Dates: start: 20050822, end: 20151212

REACTIONS (5)
  - Hypoxia [Fatal]
  - Cardiac failure [Fatal]
  - Condition aggravated [Unknown]
  - Anaemia [Fatal]
  - Pulmonary arterial hypertension [Fatal]
